FAERS Safety Report 8187210-5 (Version None)
Quarter: 2012Q1

REPORT INFORMATION
  Report Type: 
  Country: None (occurrence: None)
  Receive Date: 20120301
  Receipt Date: 20120224
  Transmission Date: 20120608
  Serious: Yes (Hospitalization)
  Sender: FDA-Public Use
  Company Number: DSA_46963_2011

PATIENT
  Sex: Male

DRUGS (10)
  1. ASPIRIN [Concomitant]
  2. ORGANIC NITRATES [Concomitant]
  3. BETA BLOCKER [Concomitant]
  4. LANTUS [Suspect]
     Indication: TYPE 2 DIABETES MELLITUS
     Dosage: (DF)
  5. GLIPIZIDE [Suspect]
     Indication: TYPE 2 DIABETES MELLITUS
     Dosage: (DF)
  6. DIURETICS [Concomitant]
  7. ENALAPRIL MALEATE [Suspect]
  8. SAXAGLIPTIN [Suspect]
     Indication: TYPE 2 DIABETES MELLITUS
     Dosage: (DF)
     Dates: start: 20101022
  9. PLACEBO [Suspect]
     Indication: TYPE 2 DIABETES MELLITUS
     Dosage: (DF)
     Dates: start: 20101022
  10. ACE INHIBITORS [Concomitant]

REACTIONS (2)
  - CHEST DISCOMFORT [None]
  - FALL [None]
